FAERS Safety Report 5278010-4 (Version None)
Quarter: 2007Q1

REPORT INFORMATION
  Report Type: 
  Country: None (occurrence: None)
  Receive Date: 20070321
  Receipt Date: 20070305
  Transmission Date: 20070707
  Serious: Yes (Hospitalization)
  Sender: FDA-Public Use
  Company Number: 8022484

PATIENT
  Age: 38 Year
  Sex: Female

DRUGS (4)
  1. KEPPRA [Suspect]
     Indication: EPILEPSY
     Dosage: PO
     Route: 048
     Dates: start: 20040101, end: 20060701
  2. CARBAMAZEPINE [Suspect]
     Indication: EPILEPSY
     Dosage: PO/A FEW YEARS
     Route: 048
     Dates: end: 20060701
  3. AZULFIDINE [Suspect]
     Indication: SPONDYLOARTHROPATHY
     Dosage: 2000 MG 1/D PO
     Route: 048
     Dates: start: 20051201, end: 20060701
  4. NAPROXEN [Suspect]
     Indication: SPONDYLOARTHROPATHY
     Dosage: PO
     Route: 048
     Dates: end: 20060701

REACTIONS (4)
  - APLASTIC ANAEMIA [None]
  - BONE MARROW FAILURE [None]
  - CONVULSION [None]
  - LEUKOPENIA [None]
